FAERS Safety Report 6603650-7 (Version None)
Quarter: 2010Q1

REPORT INFORMATION
  Report Type: 
  Country: None (occurrence: None)
  Receive Date: 20100226
  Receipt Date: 20100218
  Transmission Date: 20100710
  Serious: Yes (Other)
  Sender: FDA-Public Use
  Company Number: US-JNJFOC-20100209428

PATIENT
  Sex: Female
  Weight: 111.13 kg

DRUGS (20)
  1. DURAGESIC-100 [Suspect]
     Indication: BACK PAIN
     Route: 062
  2. DURAGESIC-100 [Suspect]
     Route: 062
  3. DURAGESIC-100 [Suspect]
     Route: 062
  4. LEVOTHYROXINE [Concomitant]
     Indication: THYROID DISORDER
     Route: 048
  5. PROTONIX [Concomitant]
     Indication: DYSPEPSIA
     Route: 048
  6. BENICAR [Concomitant]
     Indication: HYPERTENSION
     Route: 048
  7. SINGULAIR [Concomitant]
     Indication: ASTHMA
     Route: 048
  8. SOMA [Concomitant]
     Indication: NECK PAIN
     Route: 048
  9. SOMA [Concomitant]
     Indication: BACK PAIN
     Route: 048
  10. ELAVIL [Concomitant]
     Indication: FIBROMYALGIA
     Route: 048
  11. PROMETRIUM [Concomitant]
     Indication: HORMONE REPLACEMENT THERAPY
     Route: 048
  12. LIDODERM [Concomitant]
     Indication: NECK PAIN
     Route: 061
  13. LIDODERM [Concomitant]
     Indication: BACK PAIN
     Route: 061
  14. ADVAIR DISKUS 100/50 [Concomitant]
     Indication: ASTHMA
     Route: 055
  15. ASTHMA MEDICATION [Concomitant]
     Indication: ASTHMA
     Route: 055
  16. PERCOCET [Concomitant]
     Indication: PAIN
     Route: 048
  17. LEVSIN [Concomitant]
     Indication: IRRITABLE BOWEL SYNDROME
     Route: 048
  18. ZEGERID [Concomitant]
     Indication: DYSPEPSIA
     Route: 048
  19. INDOMETHACIN [Concomitant]
     Indication: ANTIINFLAMMATORY THERAPY
     Route: 048
  20. HORMONE PILLS [Concomitant]
     Indication: HORMONE REPLACEMENT THERAPY
     Route: 048

REACTIONS (6)
  - APPLICATION SITE PAIN [None]
  - APPLICATION SITE PRURITUS [None]
  - APPLICATION SITE SCAR [None]
  - APPLICATION SITE URTICARIA [None]
  - ATRIAL FIBRILLATION [None]
  - PRODUCT QUALITY ISSUE [None]
